FAERS Safety Report 24108324 (Version 1)
Quarter: 2024Q3

REPORT INFORMATION
  Report Type: Report from Study
  Country: US (occurrence: None)
  Receive Date: 20240718
  Receipt Date: 20240718
  Transmission Date: 20241017
  Serious: Yes (Hospitalization)
  Sender: ASTRAZENECA
  Company Number: 2019SF92152

PATIENT
  Sex: Female

DRUGS (3)
  1. TAGRISSO [Suspect]
     Active Substance: OSIMERTINIB
     Indication: Lung carcinoma cell type unspecified stage 0
     Route: 048
     Dates: start: 20191120
  2. SOTALOL [Concomitant]
     Active Substance: SOTALOL
     Dosage: UNKNOWN
  3. ELIQUIS [Concomitant]
     Active Substance: APIXABAN
     Dosage: UNKNOWN

REACTIONS (6)
  - Dehydration [Recovered/Resolved]
  - Urinary tract infection [Recovered/Resolved]
  - Nausea [Recovered/Resolved]
  - Diarrhoea [Recovered/Resolved]
  - Rash [Recovered/Resolved]
  - Product dose omission issue [Recovered/Resolved]
